FAERS Safety Report 15881092 (Version 1)
Quarter: 2019Q1

REPORT INFORMATION
  Report Type: Spontaneous
  Country: US (occurrence: US)
  Receive Date: 20190128
  Receipt Date: 20190128
  Transmission Date: 20190417
  Serious: Yes (Other)
  Sender: FDA-Public Use
  Company Number: US-PFIZER INC-2019010605

PATIENT
  Age: 10 Year
  Sex: Female

DRUGS (3)
  1. GENOTROPIN [Suspect]
     Active Substance: SOMATROPIN
     Indication: PRECOCIOUS PUBERTY
     Dosage: 1 MG, 1X/DAY [EVERY AFTERNOON OR EVENING (QPM)]
     Route: 058
  2. GENOTROPIN [Suspect]
     Active Substance: SOMATROPIN
     Indication: RETT SYNDROME
  3. GENOTROPIN [Suspect]
     Active Substance: SOMATROPIN
     Indication: SEIZURE

REACTIONS (2)
  - Product use in unapproved indication [Unknown]
  - Seizure [Unknown]

NARRATIVE: CASE EVENT DATE: 20190111
